FAERS Safety Report 5836577-9 (Version None)
Quarter: 2008Q3

REPORT INFORMATION
  Report Type: 
  Country: None (occurrence: None)
  Receive Date: 20080807
  Receipt Date: 20080724
  Transmission Date: 20090109
  Serious: Yes (Hospitalization, Disabling, Other)
  Sender: FDA-Public Use
  Company Number: DE-ELI_LILLY_AND_COMPANY-DE200807005632

PATIENT
  Sex: Female

DRUGS (10)
  1. GEMZAR [Suspect]
     Indication: BRONCHIAL CARCINOMA
     Dosage: 600 MG, UNKNOWN
     Route: 042
     Dates: start: 20070904, end: 20080501
  2. GEMZAR [Suspect]
     Dosage: 600 MG, UNKNOWN
     Route: 042
     Dates: start: 20070912
  3. GEMZAR [Suspect]
     Dosage: 1000 MG, UNKNOWN
     Route: 042
     Dates: start: 20080125
  4. ALIMTA [Suspect]
     Indication: BRONCHIAL CARCINOMA
     Dosage: 500 MG, 1 PER 3 WEEKS
     Route: 042
     Dates: start: 20080328, end: 20080501
  5. AVASTIN [Concomitant]
     Indication: NON-SMALL CELL LUNG CANCER
     Dosage: 100 MG, UNKNOWN
     Route: 042
     Dates: start: 20070912, end: 20080515
  6. TARCEVA [Concomitant]
     Indication: BRONCHIAL CARCINOMA
     Dosage: 100 MG, DAILY (1/D)
     Route: 065
     Dates: start: 20070801, end: 20070824
  7. TAXOTERE [Concomitant]
     Indication: BRONCHIAL CARCINOMA
     Dosage: UNK, UNKNOWN
     Route: 065
     Dates: start: 20070904, end: 20080501
  8. CARBOPLATIN [Concomitant]
     Indication: CHEMOTHERAPY
     Dosage: UNK, UNKNOWN
     Route: 065
     Dates: start: 20061122, end: 20070320
  9. PACLITAXEL [Concomitant]
     Dosage: 175 MG/M2, UNKNOWN
     Route: 065
     Dates: start: 20061122, end: 20070320
  10. SORAFENIB [Concomitant]
     Indication: CHEMOTHERAPY
     Dosage: UNK, UNKNOWN
     Route: 065
     Dates: start: 20061122, end: 20070320

REACTIONS (14)
  - ANGIOGRAM ABNORMAL [None]
  - BLINDNESS [None]
  - DISEASE PROGRESSION [None]
  - HYPOAESTHESIA [None]
  - INTERVERTEBRAL DISC PROTRUSION [None]
  - LYMPHANGIOSIS CARCINOMATOSA [None]
  - LYMPHOMA [None]
  - MENISCUS LESION [None]
  - METASTASES TO LYMPH NODES [None]
  - MOBILITY DECREASED [None]
  - OPTIC ISCHAEMIC NEUROPATHY [None]
  - OSTEOARTHRITIS [None]
  - OSTEOCHONDROSIS [None]
  - POLYNEUROPATHY [None]
